FAERS Safety Report 6475288-6 (Version None)
Quarter: 2009Q4

REPORT INFORMATION
  Report Type: 
  Country: None (occurrence: None)
  Receive Date: 20091204
  Receipt Date: 20090605
  Transmission Date: 20100525
  Serious: Yes (Hospitalization, Other)
  Sender: FDA-Public Use
  Company Number: US-ELI_LILLY_AND_COMPANY-US200904003422

PATIENT
  Sex: Female
  Weight: 72.109 kg

DRUGS (5)
  1. HUMULIN 70/30 [Suspect]
     Indication: DIABETES MELLITUS
  2. ASACOL [Concomitant]
     Dosage: UNK, DAILY (1/D)
  3. NOVOLIN 70/30 [Concomitant]
     Dosage: 15 U, EACH EVENING
  4. NOVOLIN 70/30 [Concomitant]
     Dosage: 20 U, EACH EVENING
  5. NOVOLIN 70/30 [Concomitant]
     Dosage: 25 U, EACH MORNING

REACTIONS (35)
  - ABDOMINAL PAIN [None]
  - ANIMAL BITE [None]
  - ARTERIOSCLEROSIS [None]
  - ARTHRITIS [None]
  - ATRIAL FIBRILLATION [None]
  - BLOOD GLUCOSE DECREASED [None]
  - CARDIAC DISORDER [None]
  - CARDIAC FAILURE CONGESTIVE [None]
  - CELLULITIS [None]
  - CHRONIC MYELOID LEUKAEMIA [None]
  - COLITIS [None]
  - CONSTIPATION [None]
  - DIABETIC NEUROPATHY [None]
  - DIARRHOEA [None]
  - DYSPNOEA [None]
  - ERYTHEMA [None]
  - EYE SWELLING [None]
  - FAECALOMA [None]
  - FLATULENCE [None]
  - FLUID RETENTION [None]
  - GASTROOESOPHAGEAL REFLUX DISEASE [None]
  - HYPERLIPIDAEMIA [None]
  - HYPERTENSION [None]
  - INCONTINENCE [None]
  - INCREASED APPETITE [None]
  - LACRIMATION INCREASED [None]
  - LEUKOCYTOSIS [None]
  - MUSCLE SPASMS [None]
  - NASOPHARYNGITIS [None]
  - OEDEMA [None]
  - RALES [None]
  - RHINORRHOEA [None]
  - SEPSIS [None]
  - URINARY TRACT INFECTION [None]
  - WEIGHT INCREASED [None]
